FAERS Safety Report 7931505-4 (Version None)
Quarter: 2011Q4

REPORT INFORMATION
  Report Type: 
  Country: None (occurrence: None)
  Receive Date: 20111121
  Receipt Date: 20111121
  Transmission Date: 20120403
  Serious: Yes (Life-Threatening)
  Sender: FDA-Public Use
  Company Number: None

PATIENT
  Age: 39 Year
  Sex: Female

DRUGS (1)
  1. DOXYCYCLINE [Suspect]
     Indication: CELLULITIS
     Dosage: 100 MG
     Route: 048
     Dates: start: 20110726, end: 20110729

REACTIONS (6)
  - DYSPHAGIA [None]
  - PRURITUS [None]
  - RASH MACULAR [None]
  - DYSPNOEA [None]
  - HYPERSENSITIVITY [None]
  - DROOLING [None]
